FAERS Safety Report 18764502 (Version 1)
Quarter: 2021Q1

REPORT INFORMATION
  Report Type: Report from Study
  Country: CZ (occurrence: CZ)
  Receive Date: 20210120
  Receipt Date: 20210120
  Transmission Date: 20210419
  Serious: Yes (Other)
  Sender: FDA-Public Use
  Company Number: CZ-TEVA-2021-CZ-1871415

PATIENT
  Age: 15 Year
  Sex: Female

DRUGS (1)
  1. FLUDARABINE [Suspect]
     Active Substance: FLUDARABINE PHOSPHATE
     Indication: DRUG THERAPY
     Dosage: 25 MG/ML
     Route: 065

REACTIONS (2)
  - Off label use [Unknown]
  - Squamous cell carcinoma of the tongue [Recovered/Resolved]
